FAERS Safety Report 9283787 (Version 1)
Quarter: 2013Q2

REPORT INFORMATION
  Report Type: Report from Study
  Country: JP (occurrence: JP)
  Receive Date: 20130510
  Receipt Date: 20130510
  Transmission Date: 20140414
  Serious: Yes (Other)
  Sender: FDA-Public Use
  Company Number: JP-NAPPMUNDI-GBR-2013-0013375

PATIENT
  Age: 59 Year
  Sex: Male
  Weight: 81 kg

DRUGS (9)
  1. BTDS PATCH [Suspect]
     Indication: ANALGESIC THERAPY
     Dosage: 10 MCG, Q1H
     Route: 062
     Dates: start: 20120714, end: 20120720
  2. BTDS PATCH [Suspect]
     Dosage: 5 MCG, Q1H
     Route: 062
     Dates: start: 20120701, end: 20120713
  3. MOHRUS [Concomitant]
     Indication: OSTEOARTHRITIS
     Dosage: 1 DF, DAILY
     Route: 061
     Dates: start: 20120630
  4. MOHRUS [Concomitant]
     Indication: BACK PAIN
  5. NAUZELIN [Concomitant]
     Indication: PROPHYLAXIS
     Dosage: 20 MG, DAILY
     Route: 048
     Dates: start: 20120630, end: 20120713
  6. KASHIWADOL                         /00734501/ [Concomitant]
     Indication: OSTEOARTHRITIS
     Dosage: 20 ML AMPULE PER DAY PRN
     Route: 042
     Dates: start: 20120714, end: 20120714
  7. KASHIWADOL                         /00734501/ [Concomitant]
     Indication: BACK PAIN
  8. NEUROTROPIN                        /06251301/ [Concomitant]
     Indication: OSTEOARTHRITIS
     Dosage: 3 ML, AMPULE DAILY PRN
     Route: 042
     Dates: start: 20120714, end: 20120714
  9. NEUROTROPIN                        /06251301/ [Concomitant]
     Indication: BACK PAIN

REACTIONS (4)
  - Aphagia [Recovering/Resolving]
  - Nausea [Recovering/Resolving]
  - Vomiting [Recovering/Resolving]
  - Weight decreased [Recovering/Resolving]
